FAERS Safety Report 15226617 (Version 4)
Quarter: 2018Q3

REPORT INFORMATION
  Report Type: Spontaneous
  Country: DE (occurrence: DE)
  Receive Date: 20180801
  Receipt Date: 20180902
  Transmission Date: 20181010
  Serious: Yes (Death, Life-Threatening, Hospitalization, Other)
  Sender: FDA-Public Use
  Company Number: PHHY2017DE204447

PATIENT
  Age: 79 Year
  Sex: Male
  Weight: 82 kg

DRUGS (5)
  1. VARGATEF [Suspect]
     Active Substance: NINTEDANIB
     Dosage: 400 MG, QD
     Route: 048
  2. VARGATEF [Suspect]
     Active Substance: NINTEDANIB
     Indication: LUNG ADENOCARCINOMA
     Dosage: 200 MG, QD
     Route: 048
  3. VARGATEF [Suspect]
     Active Substance: NINTEDANIB
     Dosage: 400 MG, QD
     Route: 048
     Dates: start: 20171020, end: 20171027
  4. DOCETAXEL. [Suspect]
     Active Substance: DOCETAXEL
     Indication: PRODUCT USED FOR UNKNOWN INDICATION
     Dosage: 75 MG/M2, QD (75 MG/M2 BODY SURFACE AREA)
     Route: 042
  5. DOCETAXEL. [Suspect]
     Active Substance: DOCETAXEL
     Dosage: 75 MG/M2, QD (DAILY DOSE OF DOCETAXEL: 75 MG/M2 BODY SURFACE AREA)
     Route: 042
     Dates: start: 20171019

REACTIONS (7)
  - Gastritis [Fatal]
  - Sepsis [Fatal]
  - Lung infection [Fatal]
  - Diarrhoea [Fatal]
  - Pneumonitis [Fatal]
  - Acidosis [Fatal]
  - Acute kidney injury [Unknown]

NARRATIVE: CASE EVENT DATE: 20171023
